FAERS Safety Report 18691119 (Version 7)
Quarter: 2023Q4

REPORT INFORMATION
  Report Type: Report from Study
  Country: US (occurrence: US)
  Receive Date: 20210101
  Receipt Date: 20231206
  Transmission Date: 20240109
  Serious: Yes (Other)
  Sender: FDA-Public Use
  Company Number: US-TAKEDA-US202027920

PATIENT
  Sex: Female

DRUGS (2)
  1. HUMAN IMMUNOGLOBULIN G [Suspect]
     Active Substance: HUMAN IMMUNOGLOBULIN G
     Indication: Immunodeficiency common variable
     Dosage: UNK
     Route: 065
  2. HUMAN IMMUNOGLOBULIN G [Suspect]
     Active Substance: HUMAN IMMUNOGLOBULIN G
     Indication: Primary immunodeficiency syndrome

REACTIONS (11)
  - Pneumonia [Recovering/Resolving]
  - Asthma [Unknown]
  - Accident [Unknown]
  - Back injury [Recovering/Resolving]
  - COVID-19 [Unknown]
  - Urinary tract infection [Unknown]
  - Ear infection [Unknown]
  - Influenza [Recovering/Resolving]
  - Sinusitis [Unknown]
  - Malaise [Unknown]
  - Back pain [Unknown]
